FAERS Safety Report 5160642-5 (Version None)
Quarter: 2006Q4

REPORT INFORMATION
  Report Type: 
  Country: None (occurrence: None)
  Receive Date: 20061121
  Receipt Date: 20061113
  Transmission Date: 20070319
  Serious: Yes (Life-Threatening, Hospitalization)
  Sender: FDA-Public Use
  Company Number: 2006136337

PATIENT
  Age: 16 Year
  Sex: Male

DRUGS (3)
  1. ZIPRASIDONE HCL [Suspect]
     Indication: SCHIZOPHRENIA
     Dosage: (80 MG), ORAL
     Route: 048
     Dates: start: 20040114, end: 20041015
  2. CLONAZEPAM [Concomitant]
  3. SERTRALINE [Concomitant]

REACTIONS (3)
  - AGGRESSION [None]
  - HOMICIDAL IDEATION [None]
  - SUICIDAL BEHAVIOUR [None]
